FAERS Safety Report 16171302 (Version 1)
Quarter: 2019Q2

REPORT INFORMATION
  Report Type: Spontaneous
  Country: SE (occurrence: SE)
  Receive Date: 20190408
  Receipt Date: 20190408
  Transmission Date: 20190711
  Serious: Yes (Other)
  Sender: FDA-Public Use
  Company Number: SE-MYLANLABS-2019M1032323

PATIENT
  Age: 39 Year
  Sex: Female

DRUGS (4)
  1. LERGIGAN                           /00033002/ [Concomitant]
     Active Substance: PROMETHAZINE HYDROCHLORIDE
     Dosage: UNK
  2. VENLAFAXINE [Suspect]
     Active Substance: VENLAFAXINE HYDROCHLORIDE
     Dosage: 112.5 MILLIGRAM, QD
     Dates: start: 20181018, end: 20181112
  3. VENLAFAXINE [Suspect]
     Active Substance: VENLAFAXINE HYDROCHLORIDE
     Indication: PRODUCT USED FOR UNKNOWN INDICATION
     Dosage: 75 MILLIGRAM, QD
     Route: 048
     Dates: end: 20181017
  4. FOLACIN                            /00024201/ [Concomitant]
     Active Substance: FOLIC ACID
     Dosage: UNK

REACTIONS (7)
  - Mental impairment [Unknown]
  - Dizziness [Unknown]
  - Libido decreased [Unknown]
  - Anorgasmia [Unknown]
  - Emotional poverty [Unknown]
  - Abnormal dreams [Unknown]
  - Headache [Unknown]

NARRATIVE: CASE EVENT DATE: 2018
